FAERS Safety Report 9721246 (Version 3)
Quarter: 2014Q1

REPORT INFORMATION
  Report Type: Spontaneous
  Country: US (occurrence: US)
  Receive Date: 20131129
  Receipt Date: 20140123
  Transmission Date: 20141002
  Serious: No
  Sender: FDA-Public Use
  Company Number: US-PFIZER INC-2013338181

PATIENT
  Age: 64 Year
  Sex: Female
  Weight: 61.22 kg

DRUGS (4)
  1. LYRICA [Suspect]
     Indication: FIBROMYALGIA
     Dosage: UNK
  2. NEURONTIN [Suspect]
     Dosage: UNK
  3. GABAPENTIN [Suspect]
     Dosage: 300 MG, 2X/DAY
  4. LEVOTHYROXINE [Concomitant]
     Indication: HYPOTHYROIDISM
     Dosage: 150 UG, DAILY

REACTIONS (3)
  - Bedridden [Unknown]
  - Malaise [Unknown]
  - Skin burning sensation [Unknown]
